FAERS Safety Report 21905600 (Version 2)
Quarter: 2023Q1

REPORT INFORMATION
  Report Type: Spontaneous
  Country: NL (occurrence: NL)
  Receive Date: 20230124
  Receipt Date: 20230207
  Transmission Date: 20230417
  Serious: Yes (Disabling)
  Sender: FDA-Public Use
  Company Number: None

PATIENT
  Sex: Male
  Weight: 80 kg

DRUGS (1)
  1. TAMSULOSIN [Suspect]
     Active Substance: TAMSULOSIN
     Indication: Micturition disorder
     Dosage: 0.4 MILLIGRAM, QD,1X PER DAY 1 PIECE
     Route: 065
     Dates: start: 20220824, end: 20221001

REACTIONS (1)
  - Retinal detachment [Not Recovered/Not Resolved]
